FAERS Safety Report 15820140 (Version 1)
Quarter: 2019Q1

REPORT INFORMATION
  Report Type: Report from Study
  Country: None (occurrence: US)
  Receive Date: 20190114
  Receipt Date: 20190114
  Transmission Date: 20190417
  Serious: Yes (Other)
  Sender: FDA-Public Use
  Company Number: US-ABBVIE-19K-163-2618809-00

PATIENT
  Age: 55 Year
  Sex: Female

DRUGS (1)
  1. HUMIRA [Suspect]
     Active Substance: ADALIMUMAB
     Indication: PSORIATIC ARTHROPATHY
     Route: 058
     Dates: start: 201801, end: 20180301

REACTIONS (14)
  - Skull fracture [Recovering/Resolving]
  - Blood glucose increased [Not Recovered/Not Resolved]
  - Psoriasis [Not Recovered/Not Resolved]
  - Psoriatic arthropathy [Not Recovered/Not Resolved]
  - Hip fracture [Recovering/Resolving]
  - Tachycardia [Not Recovered/Not Resolved]
  - Fall [Recovering/Resolving]
  - Joint swelling [Not Recovered/Not Resolved]
  - Concussion [Recovering/Resolving]
  - Hepatic enzyme increased [Not Recovered/Not Resolved]
  - Facial bones fracture [Recovering/Resolving]
  - Blood creatinine increased [Not Recovered/Not Resolved]
  - Wrist fracture [Recovering/Resolving]
  - Back pain [Not Recovered/Not Resolved]

NARRATIVE: CASE EVENT DATE: 20180301
